FAERS Safety Report 10229022 (Version 1)
Quarter: 2014Q2

REPORT INFORMATION
  Report Type: Spontaneous
  Country: US (occurrence: US)
  Receive Date: 20140610
  Receipt Date: 20140610
  Transmission Date: 20141212
  Serious: Yes (Death, Other)
  Sender: FDA-Public Use
  Company Number: US-GILEAD-2014-0104684

PATIENT
  Age: 74 Year
  Sex: Female

DRUGS (18)
  1. LETAIRIS [Suspect]
     Indication: PULMONARY ARTERIAL HYPERTENSION
     Dosage: 10 MG, QD
     Route: 048
     Dates: start: 201307, end: 20140507
  2. METOLAZONE [Concomitant]
  3. MORPHINE [Concomitant]
  4. ATENOLOL [Concomitant]
  5. KCL [Concomitant]
  6. FUROSEMIDE [Concomitant]
  7. TRAZODONE [Concomitant]
  8. TIOTROPIUM [Concomitant]
  9. DULERA [Concomitant]
  10. CLONAZEPAM [Concomitant]
  11. SILDENAFIL [Concomitant]
  12. INSULIN, REGULAR [Concomitant]
  13. CYANOCOBALAMIN [Concomitant]
  14. PHENYTOIN [Concomitant]
  15. LEVOTHYROXINE [Concomitant]
  16. GLIPIZIDE [Concomitant]
  17. FLUOXETINE [Concomitant]
  18. FAMOTIDINE [Concomitant]

REACTIONS (4)
  - Liver function test abnormal [Fatal]
  - Blood creatinine increased [Fatal]
  - Blood potassium increased [Fatal]
  - Oedema peripheral [Fatal]
